FAERS Safety Report 6652008-3 (Version None)
Quarter: 2010Q1

REPORT INFORMATION
  Report Type: 
  Country: None (occurrence: None)
  Receive Date: 20100322
  Receipt Date: 20100309
  Transmission Date: 20100710
  Serious: Yes (Hospitalization)
  Sender: FDA-Public Use
  Company Number: 229-20484-09121834

PATIENT
  Sex: Female
  Weight: 3 kg

DRUGS (4)
  1. INNOHEP [Suspect]
     Indication: DRUG EXPOSURE DURING PREGNANCY
     Dosage: TRANSPLACENTAL
     Route: 064
     Dates: start: 20051221, end: 20060813
  2. INNOHEP [Suspect]
     Indication: FACTOR V LEIDEN MUTATION
     Dosage: TRANSPLACENTAL
     Route: 064
     Dates: start: 20051221, end: 20060813
  3. METFORMIN HCL [Concomitant]
  4. AMOXICILLIN [Concomitant]

REACTIONS (6)
  - HYPOGLYCAEMIA NEONATAL [None]
  - MATERNAL DRUGS AFFECTING FOETUS [None]
  - POLYCYTHAEMIA [None]
  - PREMATURE BABY [None]
  - SEPSIS NEONATAL [None]
  - THROMBOCYTOPENIA NEONATAL [None]
